FAERS Safety Report 19162893 (Version 1)
Quarter: 2021Q2

REPORT INFORMATION
  Report Type: Spontaneous
  Country: US (occurrence: US)
  Receive Date: 20210420
  Receipt Date: 20210420
  Transmission Date: 20210717
  Serious: Yes (Hospitalization)
  Sender: FDA-Public Use
  Company Number: None

PATIENT
  Age: 63 Year
  Sex: Male
  Weight: 106.2 kg

DRUGS (3)
  1. OXYCODONE [Concomitant]
     Active Substance: OXYCODONE
  2. ERBITUX [Suspect]
     Active Substance: CETUXIMAB
     Dates: end: 20210324
  3. BENADRYL [Concomitant]
     Active Substance: DIPHENHYDRAMINE HYDROCHLORIDE

REACTIONS (7)
  - Respiratory failure [None]
  - Hypoxia [None]
  - Procalcitonin increased [None]
  - Pneumonia [None]
  - Mental status changes [None]
  - Aspiration [None]
  - Sepsis [None]

NARRATIVE: CASE EVENT DATE: 20210407
